FAERS Safety Report 5797962-7 (Version None)
Quarter: 2008Q3

REPORT INFORMATION
  Report Type: 
  Country: None (occurrence: None)
  Receive Date: 20080701
  Receipt Date: 20080701
  Transmission Date: 20090109
  Serious: Yes (Other)
  Sender: FDA-Public Use
  Company Number: None

PATIENT
  Sex: Male
  Weight: 53.8 kg

DRUGS (1)
  1. DEPAKENE [Suspect]
     Indication: EPILEPSY
     Dosage: 5ML IN AM PO  6ML IN PM PO
     Route: 048
     Dates: start: 20030101

REACTIONS (1)
  - PHARMACEUTICAL PRODUCT COMPLAINT [None]
